FAERS Safety Report 16328180 (Version 1)
Quarter: 2019Q2

REPORT INFORMATION
  Report Type: Spontaneous
  Country: US (occurrence: US)
  Receive Date: 20190518
  Receipt Date: 20190518
  Transmission Date: 20190711
  Serious: Yes (Other)
  Sender: FDA-Public Use
  Company Number: US-CONCORDIA PHARMACEUTICALS INC.-GSH201807-002636

PATIENT
  Sex: Female

DRUGS (7)
  1. ARAVA [Suspect]
     Active Substance: LEFLUNOMIDE
     Indication: RHEUMATOID ARTHRITIS
     Route: 048
     Dates: start: 2004, end: 201608
  2. MTX [Concomitant]
     Active Substance: METHOTREXATE SODIUM
     Dates: start: 2008, end: 201509
  3. XELJANZ XR [Concomitant]
     Active Substance: TOFACITINIB CITRATE
  4. REMICADE [Concomitant]
     Active Substance: INFLIXIMAB
  5. PLAQUENIL [Suspect]
     Active Substance: HYDROXYCHLOROQUINE SULFATE
     Indication: RHEUMATOID ARTHRITIS
     Route: 048
  6. HUMIRA [Concomitant]
     Active Substance: ADALIMUMAB
  7. ENBREL [Concomitant]
     Active Substance: ETANERCEPT
     Dates: start: 2010, end: 20180124

REACTIONS (2)
  - Leukopenia [Recovered/Resolved]
  - Drug ineffective [Unknown]
